FAERS Safety Report 21376642 (Version 3)
Quarter: 2022Q4

REPORT INFORMATION
  Report Type: Spontaneous
  Country: IT (occurrence: IT)
  Receive Date: 20220926
  Receipt Date: 20221118
  Transmission Date: 20230112
  Serious: Yes (Death, Other)
  Sender: FDA-Public Use
  Company Number: IT-AMGEN-ITASP2022163087

PATIENT

DRUGS (2)
  1. BEVACIZUMAB [Suspect]
     Active Substance: BEVACIZUMAB
     Indication: Meningioma
     Dosage: 10 MILLIGRAM/KG, Q2WK
     Route: 065
  2. BEVACIZUMAB [Suspect]
     Active Substance: BEVACIZUMAB
     Dosage: 5 MILLIGRAM/KG, Q2WK
     Route: 065

REACTIONS (6)
  - Death [Fatal]
  - Meningioma [Unknown]
  - Anaplastic meningioma [Unknown]
  - Off label use [Unknown]
  - Therapy partial responder [Unknown]
  - Hypertension [Unknown]
